FAERS Safety Report 4297249-8 (Version None)
Quarter: 2004Q1

REPORT INFORMATION
  Report Type: 
  Country: None (occurrence: None)
  Receive Date: 20040213
  Receipt Date: 20040204
  Transmission Date: 20041129
  Serious: Yes (Hospitalization)
  Sender: FDA-Public Use
  Company Number: 2004-02-0247

PATIENT
  Age: 26 Year
  Sex: Male
  Weight: 75 kg

DRUGS (1)
  1. CLARITIN-D 24 HOUR [Suspect]
     Indication: RHINITIS ALLERGIC
     Dosage: 1 TAB QD ORAL
     Route: 048
     Dates: start: 20030915, end: 20031014

REACTIONS (1)
  - CONVULSION [None]
